FAERS Safety Report 11792602 (Version 3)
Quarter: 2016Q1

REPORT INFORMATION
  Report Type: Report from Study
  Country: US (occurrence: US)
  Receive Date: 20151202
  Receipt Date: 20160219
  Transmission Date: 20160525
  Serious: Yes (Hospitalization)
  Sender: FDA-Public Use
  Company Number: US-ROCHE-1656293

PATIENT
  Age: 65 Year
  Sex: Male

DRUGS (16)
  1. METHOTREXATE [Concomitant]
     Active Substance: METHOTREXATE
     Indication: RHEUMATOID ARTHRITIS
     Route: 048
     Dates: start: 201112, end: 20120405
  2. LYSINE [Concomitant]
     Active Substance: LYSINE
     Indication: STOMATITIS
     Route: 048
     Dates: start: 20110323
  3. OMEPRAZOLE. [Concomitant]
     Active Substance: OMEPRAZOLE
     Indication: GASTROOESOPHAGEAL REFLUX DISEASE
     Route: 048
     Dates: start: 20110104
  4. FOLIC ACID. [Concomitant]
     Active Substance: FOLIC ACID
     Indication: RHEUMATOID ARTHRITIS
     Route: 048
     Dates: start: 201112
  5. NEOSPORIN (BACITRACIN/NEOMYCIN/POLYMYXIN B) [Concomitant]
     Indication: ORAL HERPES
     Route: 061
     Dates: start: 20131015, end: 20131030
  6. TOCILIZUMAB [Suspect]
     Active Substance: TOCILIZUMAB
     Indication: RHEUMATOID ARTHRITIS
     Dosage: LAST DOSE PRIOR TO SAE 19/OCT/2015.
     Route: 042
  7. VICKS NYQUIL [Concomitant]
     Active Substance: ACETAMINOPHEN\DEXTROMETHORPHAN HYDROBROMIDE\DOXYLAMINE SUCCINATE
     Indication: SINUS OPERATION
     Route: 048
     Dates: start: 20130109, end: 20130125
  8. CLARITIN [Concomitant]
     Active Substance: LORATADINE
     Indication: SINUS OPERATION
     Route: 048
     Dates: start: 20140714
  9. FISH OIL [Concomitant]
     Active Substance: FISH OIL
     Indication: PROPHYLAXIS
     Route: 048
     Dates: start: 20151103
  10. SULFASALAZINE. [Concomitant]
     Active Substance: SULFASALAZINE
     Indication: RHEUMATOID ARTHRITIS
     Route: 048
     Dates: start: 20111213, end: 20120405
  11. PREDNISONE. [Concomitant]
     Active Substance: PREDNISONE
     Indication: RHEUMATOID ARTHRITIS
     Route: 048
     Dates: start: 20120503, end: 20130120
  12. LISINOPRIL HCTZ [Concomitant]
     Active Substance: HYDROCHLOROTHIAZIDE\LISINOPRIL
     Indication: HYPERTENSION
     Route: 048
     Dates: start: 20120928
  13. ASPIRIN. [Concomitant]
     Active Substance: ASPIRIN
     Indication: PROPHYLAXIS
     Route: 048
     Dates: start: 20151103
  14. BENADRYL [Concomitant]
     Active Substance: DIPHENHYDRAMINE HYDROCHLORIDE
     Indication: SINUS OPERATION
     Route: 048
     Dates: start: 20140714
  15. SIMVASTATIN. [Concomitant]
     Active Substance: SIMVASTATIN
     Indication: HYPERTENSION
     Route: 048
     Dates: start: 20120928
  16. IBUPROFEN. [Concomitant]
     Active Substance: IBUPROFEN
     Indication: OSTEOARTHRITIS
     Route: 048
     Dates: start: 1975

REACTIONS (1)
  - Acute myocardial infarction [Recovered/Resolved]

NARRATIVE: CASE EVENT DATE: 20151102
